FAERS Safety Report 24353004 (Version 1)
Quarter: 2024Q3

REPORT INFORMATION
  Report Type: Spontaneous
  Country: US (occurrence: US)
  Receive Date: 20240923
  Receipt Date: 20240923
  Transmission Date: 20241017
  Serious: No
  Sender: ROCHE
  Company Number: US-ROCHE-3475989

PATIENT
  Sex: Female
  Weight: 100.0 kg

DRUGS (2)
  1. HERCEPTIN [Suspect]
     Active Substance: TRASTUZUMAB
     Indication: Breast cancer
     Dosage: 6 MG/KG EVERY 3 WEEKS
     Route: 065
     Dates: start: 202303
  2. TAXOL [Concomitant]
     Active Substance: PACLITAXEL
     Indication: Breast cancer

REACTIONS (1)
  - Fatigue [Unknown]
